FAERS Safety Report 19222185 (Version 1)
Quarter: 2021Q2

REPORT INFORMATION
  Report Type: Spontaneous
  Country: DE (occurrence: DE)
  Receive Date: 20210505
  Receipt Date: 20210505
  Transmission Date: 20210717
  Serious: Yes (Other)
  Sender: FDA-Public Use
  Company Number: DE-TEVA-2021-DE-1907081

PATIENT

DRUGS (6)
  1. DAPSONE. [Suspect]
     Active Substance: DAPSONE
     Indication: PEMPHIGUS
     Dosage: STEROID SPARING TREATMENT
     Route: 048
  2. RITUXIMAB. [Suspect]
     Active Substance: RITUXIMAB
     Indication: PEMPHIGUS
     Route: 065
  3. METHYLPREDNISOLONE. [Suspect]
     Active Substance: METHYLPREDNISOLONE
     Indication: PEMPHIGUS
     Dosage: THREE TIMES WITHIN THREE DAYS AND REPEATED GREATER THAN OR EQUAL TO THREE TIMES IN GREATER THAN O...
     Route: 042
  4. CYCLOPHOSPHAMIDE. [Suspect]
     Active Substance: CYCLOPHOSPHAMIDE
     Indication: PEMPHIGUS
     Dosage: WITHIN THREE DAYS AND REPEATED GREATER THAN OR EQUAL TO THREE TIMES IN GREATER THAN OR EQUAL TO F...
     Route: 042
  5. DEXAMETHASONE. [Suspect]
     Active Substance: DEXAMETHASONE
     Indication: PEMPHIGUS
     Dosage: WITHIN THREE DAYS AND REPEATED GREATER THAN OR EQUAL TO THREE TIMES IN GREATER THAN OR EQUAL TO F...
     Route: 042
  6. AZATHIOPRINE. [Suspect]
     Active Substance: AZATHIOPRINE
     Indication: PEMPHIGUS
     Dosage: STEROID SPARING TREATMENT
     Route: 048

REACTIONS (4)
  - Infection [Unknown]
  - Gastrointestinal disorder [Unknown]
  - Anaemia [Unknown]
  - Pneumonia [Unknown]
